FAERS Safety Report 23470014 (Version 3)
Quarter: 2024Q1

REPORT INFORMATION
  Report Type: Report from Study
  Country: US (occurrence: US)
  Receive Date: 20240202
  Receipt Date: 20240317
  Transmission Date: 20240410
  Serious: Yes (Other)
  Sender: FDA-Public Use
  Company Number: US-ABBVIE-5619328

PATIENT
  Age: 68 Year
  Sex: Male
  Weight: 71.667 kg

DRUGS (2)
  1. HUMIRA [Suspect]
     Active Substance: ADALIMUMAB
     Indication: Psoriatic arthropathy
     Route: 058
     Dates: end: 2024
  2. HUMIRA [Suspect]
     Active Substance: ADALIMUMAB
     Route: 058
     Dates: start: 2024

REACTIONS (4)
  - Umbilical hernia [Recovered/Resolved]
  - Incision site haematoma [Unknown]
  - Incision site inflammation [Recovered/Resolved]
  - Incision site swelling [Recovered/Resolved]

NARRATIVE: CASE EVENT DATE: 20240129
